FAERS Safety Report 5020031-0 (Version None)
Quarter: 2006Q2

REPORT INFORMATION
  Report Type: 
  Country: None (occurrence: None)
  Receive Date: 20060601
  Receipt Date: 20060523
  Transmission Date: 20061013
  Serious: Yes (Death)
  Sender: FDA-Public Use
  Company Number: 2005-01054

PATIENT
  Age: 67 Year
  Sex: Female
  Weight: 62.2 kg

DRUGS (6)
  1. VELCADE [Suspect]
     Indication: MULTIPLE MYELOMA
     Dosage: 2.10 MG, IV BOLUS
     Route: 040
     Dates: start: 20050412, end: 20050510
  2. SOTALOL HCL [Concomitant]
  3. FUROSEMIDE [Concomitant]
  4. ACETAMINOPHEN [Concomitant]
  5. AMIODARONE HCL [Concomitant]
  6. SPIRONOLACTONE [Concomitant]

REACTIONS (6)
  - ARRHYTHMIA [None]
  - DEHYDRATION [None]
  - FOOD INTOLERANCE [None]
  - MALAISE [None]
  - NAUSEA [None]
  - VOMITING [None]
